FAERS Safety Report 6152365-0 (Version None)
Quarter: 2009Q2

REPORT INFORMATION
  Report Type: 
  Country: None (occurrence: None)
  Receive Date: 20090413
  Receipt Date: 20090403
  Transmission Date: 20091009
  Serious: Yes (Other)
  Sender: FDA-Public Use
  Company Number: US-BAYER-200917707NA

PATIENT

DRUGS (5)
  1. MAGNEVIST [Suspect]
     Indication: DRUG USE FOR UNKNOWN INDICATION
  2. OMNISCAN [Suspect]
  3. OPTIMARK [Suspect]
  4. MULTIHANCE [Suspect]
  5. PROHANCE [Suspect]

REACTIONS (1)
  - INJURY [None]
